FAERS Safety Report 9928728 (Version 2)
Quarter: 2014Q2

REPORT INFORMATION
  Report Type: Spontaneous
  Country: MX (occurrence: MX)
  Receive Date: 20140227
  Receipt Date: 20140429
  Transmission Date: 20141212
  Serious: Yes (Death, Other)
  Sender: FDA-Public Use
  Company Number: MX-PFIZER INC-2014053811

PATIENT
  Age: 8 Month
  Sex: Male

DRUGS (6)
  1. PREGABALIN [Suspect]
     Indication: EPILEPSY
     Dosage: UNK
  2. CLONAZEPAM [Suspect]
     Indication: EPILEPSY
     Dosage: UNK
  3. LEVETIRACETAM [Suspect]
     Indication: EPILEPSY
     Dosage: UNK
  4. VALPROIC ACID [Suspect]
     Indication: EPILEPSY
     Dosage: UNK
  5. VIGABATRIN [Suspect]
     Indication: EPILEPSY
     Dosage: UNK
  6. POTASSIUM BROMIDE [Suspect]
     Indication: EPILEPSY
     Dosage: UNK

REACTIONS (4)
  - Off label use [Fatal]
  - Metabolic acidosis [Fatal]
  - Status epilepticus [Unknown]
  - Drug ineffective [Unknown]
